FAERS Safety Report 9226658 (Version 2)
Quarter: 2013Q2

REPORT INFORMATION
  Report Type: Spontaneous
  Country: US (occurrence: US)
  Receive Date: 20130412
  Receipt Date: 20130415
  Transmission Date: 20140414
  Serious: No
  Sender: FDA-Public Use
  Company Number: US-PFIZER INC-2013114212

PATIENT
  Age: 45 Year
  Sex: Female
  Weight: 71.66 kg

DRUGS (4)
  1. CHANTIX [Suspect]
     Indication: SMOKING CESSATION THERAPY
     Dosage: 0.5MG DAILY
     Dates: start: 20130304, end: 201303
  2. CHANTIX [Suspect]
     Dosage: UNK
     Dates: start: 201303
  3. HYDROCODONE [Concomitant]
     Indication: PAIN
     Dosage: 7.5 MG, AS NEEDED
  4. NUVARING [Concomitant]
     Indication: CONTRACEPTION
     Dosage: UNK

REACTIONS (3)
  - Drug ineffective [Unknown]
  - Nausea [Unknown]
  - Emotional disorder [Unknown]
